FAERS Safety Report 7377741-X (Version None)
Quarter: 2011Q1

REPORT INFORMATION
  Report Type: 
  Country: None (occurrence: None)
  Receive Date: 20110316
  Receipt Date: 20110302
  Transmission Date: 20110831
  Serious: Yes (Other)
  Sender: FDA-Public Use
  Company Number: 2010S1000950

PATIENT
  Sex: Male

DRUGS (1)
  1. LIVALO [Suspect]
     Dosage: 2 MG, PO
     Route: 048

REACTIONS (1)
  - LOW DENSITY LIPOPROTEIN INCREASED [None]
